FAERS Safety Report 11677079 (Version 1)
Quarter: 2015Q4

REPORT INFORMATION
  Report Type: Spontaneous
  Country: US (occurrence: US)
  Receive Date: 20151027
  Receipt Date: 20151027
  Transmission Date: 20160304
  Serious: No
  Sender: FDA-Public Use
  Company Number: US-ELI_LILLY_AND_COMPANY-US201005001756

PATIENT
  Sex: Female

DRUGS (7)
  1. THYROID THERAPY [Concomitant]
     Active Substance: UNSPECIFIED INGREDIENT
  2. ASPIRIN. [Concomitant]
     Active Substance: ASPIRIN
  3. BIAXIN [Concomitant]
     Active Substance: CLARITHROMYCIN
     Indication: LUNG DISORDER
  4. FORTEO [Suspect]
     Active Substance: TERIPARATIDE
     Indication: OSTEOPOROSIS
     Dosage: 20 UG, DAILY (1/D)
  5. ASTHMA-SPRAY [Concomitant]
     Indication: ASTHMA
  6. PLAVIX [Concomitant]
     Active Substance: CLOPIDOGREL BISULFATE
  7. ANTIHYPERTENSIVES [Concomitant]
     Active Substance: UNSPECIFIED INGREDIENT
     Indication: HYPERTENSION

REACTIONS (7)
  - Arthritis [Unknown]
  - Muscle spasms [Unknown]
  - Blood calcium increased [Recovered/Resolved]
  - Blood test abnormal [Unknown]
  - Finger deformity [Unknown]
  - Hearing impaired [Unknown]
  - Tooth disorder [Unknown]
